FAERS Safety Report 6640007-7 (Version None)
Quarter: 2010Q1

REPORT INFORMATION
  Report Type: 
  Country: None (occurrence: None)
  Receive Date: 20100318
  Receipt Date: 20100309
  Transmission Date: 20100710
  Serious: Yes (Other)
  Sender: FDA-Public Use
  Company Number: PHHY2010FR07310

PATIENT
  Sex: Female
  Weight: 105 kg

DRUGS (2)
  1. RASILEZ [Suspect]
     Indication: HYPERTENSION
     Dosage: 300 MG
     Dates: start: 20091216, end: 20100210
  2. SINGULAIR [Concomitant]
     Dosage: 10 MG, UNK
     Route: 048
     Dates: start: 20090601

REACTIONS (4)
  - DIARRHOEA [None]
  - DYSPHAGIA [None]
  - DYSPNOEA [None]
  - WHEEZING [None]
